FAERS Safety Report 5363533-X (Version None)
Quarter: 2007Q2

REPORT INFORMATION
  Report Type: 
  Country: None (occurrence: None)
  Receive Date: 20070618
  Receipt Date: 20070618
  Transmission Date: 20071010
  Serious: No
  Sender: FDA-Public Use
  Company Number: None

PATIENT
  Sex: Male
  Weight: 77.1115 kg

DRUGS (1)
  1. ZOLPIDEM [Suspect]
     Indication: INSOMNIA
     Dosage: 10MG ONCE DAILY PO
     Route: 048
     Dates: start: 20070613, end: 20070614

REACTIONS (2)
  - HALLUCINATION, VISUAL [None]
  - PHARMACEUTICAL PRODUCT COMPLAINT [None]
